FAERS Safety Report 6945037-3 (Version None)
Quarter: 2010Q3

REPORT INFORMATION
  Report Type: 
  Country: None (occurrence: None)
  Receive Date: 20100827
  Receipt Date: 20100818
  Transmission Date: 20110219
  Serious: Yes (Hospitalization)
  Sender: FDA-Public Use
  Company Number: NO-BAYER-201036580GPV

PATIENT
  Age: 16 Year
  Sex: Female

DRUGS (1)
  1. MIRENA [Suspect]
     Indication: CONTRACEPTION
     Route: 015
     Dates: start: 20100813, end: 20100815

REACTIONS (4)
  - ABDOMINAL PAIN UPPER [None]
  - GENITAL INFECTION FEMALE [None]
  - INFECTION [None]
  - PYREXIA [None]
